FAERS Safety Report 11500229 (Version 1)
Quarter: 2015Q3

REPORT INFORMATION
  Report Type: Spontaneous
  Country: US (occurrence: None)
  Receive Date: 20150911
  Receipt Date: 20150911
  Transmission Date: 20151125
  Serious: No
  Sender: FDA-Public Use
  Company Number: None

PATIENT
  Age: 68 Year
  Sex: Male
  Weight: 69.5 kg

DRUGS (1)
  1. PHENAZOPYRIDINE. [Suspect]
     Active Substance: PHENAZOPYRIDINE
     Indication: URINARY TRACT INFECTION
     Route: 048
     Dates: start: 20150412, end: 20150416

REACTIONS (4)
  - Product label issue [None]
  - Confusional state [None]
  - Incorrect dose administered [None]
  - Depressed level of consciousness [None]

NARRATIVE: CASE EVENT DATE: 20150412
